FAERS Safety Report 8924463 (Version 1)
Quarter: 2012Q4

REPORT INFORMATION
  Report Type: 
  Country: BR (occurrence: BR)
  Receive Date: 20121126
  Receipt Date: 20121126
  Transmission Date: 20130627
  Serious: Yes (Other)
  Sender: FDA-Public Use
  Company Number: BR-PFIZER INC-2012293852

PATIENT
  Age: 49 Year
  Sex: Female

DRUGS (2)
  1. LYRICA [Suspect]
     Indication: PAIN
     Dosage: 75 mg, 3x/day
     Dates: start: 20091121
  2. CYMBALTA [Concomitant]
     Indication: PAIN
     Dosage: 1 capsule (60 mg), 1x/day
     Dates: start: 20110221

REACTIONS (3)
  - Spinal pain [Unknown]
  - Monoplegia [Unknown]
  - Movement disorder [Unknown]
